FAERS Safety Report 10370420 (Version 2)
Quarter: 2015Q2

REPORT INFORMATION
  Report Type: Spontaneous
  Country: US (occurrence: US)
  Receive Date: 20140808
  Receipt Date: 20150428
  Transmission Date: 20150821
  Serious: No
  Sender: FDA-Public Use
  Company Number: US-009507513-1408USA005062

PATIENT
  Age: 6 Year
  Sex: Female

DRUGS (4)
  1. BEVACIZUMAB [Suspect]
     Active Substance: BEVACIZUMAB
     Dosage: UNK
  2. HEXADROL [Suspect]
     Active Substance: DEXAMETHASONE
     Dosage: UNK
  3. HEXADROL [Suspect]
     Active Substance: DEXAMETHASONE
     Dosage: UNK
  4. BEVACIZUMAB [Suspect]
     Active Substance: BEVACIZUMAB
     Dosage: UNK

REACTIONS (2)
  - Abnormal behaviour [Unknown]
  - Weight increased [Unknown]
